FAERS Safety Report 17864527 (Version 1)
Quarter: 2020Q2

REPORT INFORMATION
  Report Type: Report from Study
  Country: US (occurrence: US)
  Receive Date: 20200605
  Receipt Date: 20200605
  Transmission Date: 20200714
  Serious: Yes (Other)
  Sender: FDA-Public Use
  Company Number: US-ROCHE-2609662

PATIENT
  Age: 52 Year
  Sex: Female
  Weight: 104.42 kg

DRUGS (12)
  1. LOSARTAN. [Concomitant]
     Active Substance: LOSARTAN
     Indication: HYPERTENSION
     Dosage: IN THE MORNING ;ONGOING: YES
     Route: 048
     Dates: start: 2014
  2. OCREVUS [Suspect]
     Active Substance: OCRELIZUMAB
     Indication: RELAPSING-REMITTING MULTIPLE SCLEROSIS
     Route: 042
     Dates: start: 20191107
  3. CARBAMAZEPINE. [Concomitant]
     Active Substance: CARBAMAZEPINE
     Dosage: MORNING, LUNCH, AND AT BEDTIME ;ONGOING: YES
     Route: 048
     Dates: start: 201905
  4. WARFARIN [Concomitant]
     Active Substance: WARFARIN
     Dosage: MONDAY, WEDNESDAY, AND FRIDAY ;ONGOING: YES
     Route: 048
     Dates: start: 2019
  5. GABAPENTIN. [Concomitant]
     Active Substance: GABAPENTIN
     Indication: NEURALGIA
     Dosage: MORNING, LUNCH, AND AT BEDTIME ;ONGOING: YES
     Route: 048
     Dates: start: 2015
  6. HYDROCHLOROTHIAZIDE. [Concomitant]
     Active Substance: HYDROCHLOROTHIAZIDE
     Indication: HYPERTENSION
     Dosage: YES
     Route: 048
     Dates: start: 2014
  7. BACLOFEN. [Concomitant]
     Active Substance: BACLOFEN
     Indication: TRIGEMINAL NEURALGIA
     Dosage: IN THE MORNING AND AT BEDTIME ;ONGOING: YES
     Route: 048
     Dates: start: 201905
  8. POTASSIUM CHLORIDE. [Concomitant]
     Active Substance: POTASSIUM CHLORIDE
     Indication: HYPERTENSION
     Dosage: MORNING AND EVENING ;ONGOING: YES
     Route: 048
     Dates: start: 201905
  9. WARFARIN [Concomitant]
     Active Substance: WARFARIN
     Indication: THROMBOSIS PROPHYLAXIS
     Dosage: SUNDAY, TUESDAY, THURSDAY, AND SATURDAY ;ONGOING: YES
     Route: 048
     Dates: start: 2019
  10. LIDOCAINE. [Concomitant]
     Active Substance: LIDOCAINE
     Indication: TRIGEMINAL NEURALGIA
     Dosage: USE AS NEEDED ;ONGOING: YES
     Route: 048
     Dates: start: 201905
  11. LEVOTHYROXINE. [Concomitant]
     Active Substance: LEVOTHYROXINE
     Indication: HYPOTHYROIDISM
     Route: 048
     Dates: start: 2011
  12. VIMPAT [Concomitant]
     Active Substance: LACOSAMIDE
     Indication: NEURALGIA
     Dosage: BREAKFAST AND AT BEDTIME ;ONGOING: YES
     Route: 048
     Dates: start: 201905

REACTIONS (8)
  - Fatigue [Not Recovered/Not Resolved]
  - Dizziness [Not Recovered/Not Resolved]
  - Urinary tract infection [Recovered/Resolved]
  - Mobility decreased [Not Recovered/Not Resolved]
  - Strabismus [Not Recovered/Not Resolved]
  - Breast pain [Unknown]
  - Hypoaesthesia [Not Recovered/Not Resolved]
  - Pruritus [Unknown]

NARRATIVE: CASE EVENT DATE: 201912
